FAERS Safety Report 7230119-1 (Version None)
Quarter: 2011Q1

REPORT INFORMATION
  Report Type: 
  Country: None (occurrence: None)
  Receive Date: 20110118
  Receipt Date: 20110108
  Transmission Date: 20110831
  Serious: Yes (Hospitalization)
  Sender: FDA-Public Use
  Company Number: US-US-EMD SERONO, INC.-236601K06USA

PATIENT
  Sex: Female

DRUGS (5)
  1. TOPAMAX [Suspect]
     Indication: DIZZINESS
     Dates: end: 20060101
  2. DIAZEPAM [Suspect]
     Indication: DIZZINESS
  3. PROZAC [Concomitant]
     Dates: start: 20080901
  4. REBIF [Suspect]
     Indication: MULTIPLE SCLEROSIS
     Route: 058
     Dates: start: 20050505, end: 20081007
  5. PROZAC [Concomitant]
     Indication: DEPRESSION
     Dates: start: 20060101, end: 20060101

REACTIONS (4)
  - DIZZINESS [None]
  - SUICIDE ATTEMPT [None]
  - DEPRESSION [None]
  - INTENTIONAL SELF-INJURY [None]
